FAERS Safety Report 15832562 (Version 1)
Quarter: 2018Q4

REPORT INFORMATION
  Report Type: Spontaneous
  Country: US (occurrence: US)
  Receive Date: 20181220
  Receipt Date: 20181220
  Transmission Date: 20190205
  Serious: No
  Sender: FDA-Public Use
  Company Number: None

PATIENT
  Sex: Female

DRUGS (2)
  1. OXYBUTYNIN. [Suspect]
     Active Substance: OXYBUTYNIN CHLORIDE
  2. TROSPIUM [Suspect]
     Active Substance: TROSPIUM

REACTIONS (4)
  - Pollakiuria [None]
  - Urticaria [None]
  - Drug ineffective [None]
  - Dysuria [None]
